FAERS Safety Report 5000224-9 (Version None)
Quarter: 2006Q2

REPORT INFORMATION
  Report Type: 
  Country: None (occurrence: None)
  Receive Date: 20060509
  Receipt Date: 20060426
  Transmission Date: 20061013
  Serious: Yes (Hospitalization)
  Sender: FDA-Public Use
  Company Number: 2006056085

PATIENT
  Age: 76 Year
  Sex: Male

DRUGS (5)
  1. ZYVOXID TABLET (LINEZOLIDE) [Suspect]
     Indication: ILL-DEFINED DISORDER
     Dosage: 1200 MG (600 MG, 2 IN 1 D), ORAL
     Route: 048
     Dates: start: 20060308, end: 20060310
  2. SIMVASTATIN [Concomitant]
  3. DEXTROPROPOXYPHENE CHLORHYDRATE; P (DEXTROPROPOXYPHENE HYDROCHLORIDE) [Concomitant]
  4. KETOPROFEN [Concomitant]
  5. FLECAINIDE ACETATE [Concomitant]

REACTIONS (3)
  - FATIGUE [None]
  - NAUSEA [None]
  - VISUAL DISTURBANCE [None]
